FAERS Safety Report 9237078 (Version 5)
Quarter: 2013Q3

REPORT INFORMATION
  Report Type: Spontaneous
  Country: US (occurrence: US)
  Receive Date: 20130417
  Receipt Date: 20130806
  Transmission Date: 20140515
  Serious: Yes (Hospitalization, Other)
  Sender: FDA-Public Use
  Company Number: US-009507513-1303USA012043

PATIENT
  Age: 56 Year
  Sex: Male

DRUGS (7)
  1. VICTRELIS [Suspect]
     Indication: CHRONIC HEPATITIS C
     Dosage: 200 MG, 4 IN ONE DAY
     Route: 048
     Dates: start: 20130315, end: 20130508
  2. REBETOL [Suspect]
     Indication: CHRONIC HEPATITIS C
     Dosage: 200MG, 6 IN 1 DAY
     Route: 048
     Dates: start: 20130215, end: 20130508
  3. PEGASYS [Suspect]
     Indication: CHRONIC HEPATITIS C
     Dosage: 180 MICROGRAM, QW
     Route: 058
     Dates: start: 20130215, end: 20130508
  4. ASPIRIN [Concomitant]
     Indication: CORONARY ARTERY DISEASE
     Dosage: 81 MG EVERY DAY
     Route: 048
  5. PLAVIX [Concomitant]
     Indication: HYPERTENSION
     Dosage: 75 MG EVERY DAY
     Route: 048
  6. HYDROCHLOROTHIAZIDE [Concomitant]
     Indication: HYPERTENSION
     Dosage: 25 MG EVERY DAY
     Route: 048
  7. NOVOLIN 70/30 [Concomitant]
     Indication: DIABETES MELLITUS

REACTIONS (21)
  - Dyspnoea [Unknown]
  - Dizziness [Unknown]
  - Anaemia [Unknown]
  - Haemoglobin decreased [Unknown]
  - Anaemia [Recovered/Resolved]
  - Hypotension [Unknown]
  - Influenza like illness [Recovered/Resolved]
  - Pyrexia [Recovered/Resolved]
  - Myalgia [Recovered/Resolved]
  - Headache [Not Recovered/Not Resolved]
  - Muscular weakness [Unknown]
  - Muscular weakness [Unknown]
  - Vision blurred [Unknown]
  - White blood cell count decreased [Unknown]
  - Gastrointestinal ulcer [Unknown]
  - Asthenia [Unknown]
  - Diarrhoea [Unknown]
  - Fatigue [Unknown]
  - Red blood cell count decreased [Unknown]
  - Dizziness [Unknown]
  - Dizziness [Unknown]
